FAERS Safety Report 7478800-3 (Version None)
Quarter: 2011Q2

REPORT INFORMATION
  Report Type: 
  Country: None (occurrence: None)
  Receive Date: 20110513
  Receipt Date: 20110506
  Transmission Date: 20111010
  Serious: Yes (Hospitalization)
  Sender: FDA-Public Use
  Company Number: US-ROCHE-770549

PATIENT
  Sex: Male
  Weight: 60.8 kg

DRUGS (8)
  1. RO 5190591 (ITMN-191) [Suspect]
     Dosage: LAST DOSE PRIOR TO SAE: 27 MARCH 2011
     Route: 048
     Dates: start: 20110317, end: 20110327
  2. PEGINTERFERON ALFA-2A [Suspect]
     Route: 058
     Dates: start: 20110407
  3. AMLODIPINE BESYLATE [Concomitant]
     Dates: start: 20110101
  4. RIBAVIRIN [Suspect]
     Dosage: LAST DOSE PRIOR TO SAE: 27 MARCH 2011
     Route: 048
     Dates: start: 20110317, end: 20110327
  5. RIBAVIRIN [Suspect]
     Route: 048
     Dates: start: 20110407
  6. RITONAVIR [Suspect]
     Dosage: LAST DOSE PRIO R TO SAE: 27 MARCH 2011, PERMANENTLY DISCONTINUED.DRUG NAME REPORTED AS NORVIR
     Route: 048
     Dates: start: 20110317, end: 20110327
  7. ENALAPRIL [Concomitant]
     Dates: start: 20050101
  8. PEGINTERFERON ALFA-2A [Suspect]
     Dosage: LAST DATE PRIOR TO SAE: 27 MARCH 2011, DOSE FORM: VIALS
     Route: 058
     Dates: start: 20110317, end: 20110331

REACTIONS (1)
  - PANCREATITIS ACUTE [None]
